FAERS Safety Report 9321737 (Version 2)
Quarter: 2013Q3

REPORT INFORMATION
  Report Type: Spontaneous
  Country: FR (occurrence: FR)
  Receive Date: 20130531
  Receipt Date: 20130701
  Transmission Date: 20140515
  Serious: Yes (Hospitalization, Other)
  Sender: FDA-Public Use
  Company Number: FR-JNJFOC-20130520610

PATIENT
  Age: 55 Year
  Sex: Male

DRUGS (2)
  1. REMICADE [Suspect]
     Indication: PSORIASIS
     Route: 042
     Dates: start: 201202, end: 201206
  2. REMICADE [Suspect]
     Indication: PSORIASIS
     Route: 042
     Dates: start: 201304

REACTIONS (6)
  - Hepatocellular injury [Unknown]
  - Hip arthroplasty [Unknown]
  - Lung disorder [Unknown]
  - Spinal cord infection [Unknown]
  - Intervertebral disc compression [Unknown]
  - Infection [Unknown]
